FAERS Safety Report 4493652-1 (Version None)
Quarter: 2004Q4

REPORT INFORMATION
  Report Type: 
  Country: None (occurrence: None)
  Receive Date: 20041102
  Receipt Date: 20041015
  Transmission Date: 20050328
  Serious: Yes (Disabling, Other)
  Sender: FDA-Public Use
  Company Number: USA041081271

PATIENT
  Age: 55 Year
  Sex: Female

DRUGS (5)
  1. PROZAC [Suspect]
     Indication: DEPRESSION
     Dates: end: 20000101
  2. XANAX (ALPRAZOLAM DUM) [Concomitant]
  3. SYNTHROID [Concomitant]
  4. NAPROSYN (NAPROXEN MEPHA) [Concomitant]
  5. CELEBREX [Concomitant]

REACTIONS (9)
  - BLINDNESS [None]
  - CONSTIPATION [None]
  - CONVULSION [None]
  - DRY MOUTH [None]
  - HYPERTHYROIDISM [None]
  - HYPOTHYROIDISM [None]
  - LIBIDO DECREASED [None]
  - REFLEX SYMPATHETIC DYSTROPHY [None]
  - WEIGHT INCREASED [None]
